FAERS Safety Report 7281169-0 (Version None)
Quarter: 2011Q1

REPORT INFORMATION
  Report Type: 
  Country: None (occurrence: None)
  Receive Date: 20110208
  Receipt Date: 20110131
  Transmission Date: 20110831
  Serious: Yes (Death)
  Sender: FDA-Public Use
  Company Number: CHPA2011US01984

PATIENT
  Age: 21 Year
  Sex: Male

DRUGS (4)
  1. ACETAMINOPHEN [Suspect]
     Route: 048
  2. AMLODIPINE W/BENAZEPRIL [Suspect]
     Route: 048
  3. CITALOPRAM [Suspect]
     Route: 048
  4. METOPROLOL [Suspect]
     Route: 048

REACTIONS (13)
  - HEPATIC ENZYME INCREASED [None]
  - COMPLETED SUICIDE [None]
  - HEART RATE DECREASED [None]
  - HYPOTENSION [None]
  - CARDIO-RESPIRATORY ARREST [None]
  - OXYGEN SATURATION DECREASED [None]
  - POOR PERIPHERAL CIRCULATION [None]
  - TRACHEAL OBSTRUCTION [None]
  - ACUTE RESPIRATORY DISTRESS SYNDROME [None]
  - BRAIN INJURY [None]
  - HYPERTROPHY [None]
  - CARDIAC ARREST [None]
  - URINE OUTPUT DECREASED [None]
